FAERS Safety Report 15490785 (Version 4)
Quarter: 2019Q3

REPORT INFORMATION
  Report Type: Spontaneous
  Country: US (occurrence: US)
  Receive Date: 20181011
  Receipt Date: 20190718
  Transmission Date: 20191004
  Serious: No
  Sender: FDA-Public Use
  Company Number: US-ASTRAZENECA-2018SF18660

PATIENT
  Age: 31426 Day
  Sex: Female
  Weight: 66.2 kg

DRUGS (4)
  1. SYMLIN [Suspect]
     Active Substance: PRAMLINTIDE ACETATE
     Indication: TYPE 2 DIABETES MELLITUS
     Route: 058
  2. BYDUREON BCISE [Suspect]
     Active Substance: EXENATIDE
     Indication: TYPE 2 DIABETES MELLITUS
     Route: 058
     Dates: start: 20180812
  3. NOVOLOG [Concomitant]
     Active Substance: INSULIN ASPART
  4. LEVEMIR [Concomitant]
     Active Substance: INSULIN DETEMIR

REACTIONS (10)
  - Incorrect dose administered [Unknown]
  - Pneumonia [Recovered/Resolved]
  - Weight increased [Unknown]
  - Needle issue [Unknown]
  - Device malfunction [Unknown]
  - Blood glucose increased [Unknown]
  - Heart rate irregular [Unknown]
  - Hypoacusis [Unknown]
  - Visual impairment [Unknown]
  - Wrong technique in device usage process [Recovered/Resolved]

NARRATIVE: CASE EVENT DATE: 20180912
